FAERS Safety Report 9187598 (Version 2)
Quarter: 2013Q2

REPORT INFORMATION
  Report Type: Report from Study
  Country: DE (occurrence: DE)
  Receive Date: 20130325
  Receipt Date: 20130502
  Transmission Date: 20140414
  Serious: Yes (Hospitalization, Other)
  Sender: FDA-Public Use
  Company Number: DE-UCBSA-081146

PATIENT
  Sex: Male

DRUGS (5)
  1. VIMPAT [Suspect]
     Indication: EPILEPSY
     Dosage: DOSE 50 MG/DAY
     Dates: start: 20090803
  2. VIMPAT [Suspect]
     Indication: EPILEPSY
     Dosage: DOSE AT VISIT 400 MG/DAY
  3. ZONISAMIDE [Concomitant]
     Indication: EPILEPSY
     Dosage: DOSE 450 MG/DAY
  4. PHENYTOIN [Concomitant]
     Indication: EPILEPSY
     Dosage: DOSE 300 MG/DAY
  5. PHENYTOIN [Concomitant]
     Indication: EPILEPSY
     Dosage: DOSE  325 MG/DAY.

REACTIONS (2)
  - Convulsion [Unknown]
  - Partial seizures [Unknown]
